FAERS Safety Report 8451828-2 (Version None)
Quarter: 2012Q2

REPORT INFORMATION
  Report Type: 
  Country: None (occurrence: None)
  Receive Date: 20120620
  Receipt Date: 20120320
  Transmission Date: 20120825
  Serious: Yes (Hospitalization)
  Sender: FDA-Public Use
  Company Number: US-VERTEX PHARMACEUTICALS INC.-AE-2012-004031

PATIENT
  Age: 56 Year
  Sex: Male
  Weight: 100.33 kg

DRUGS (3)
  1. INCIVEK [Suspect]
     Indication: HEPATITIS C
     Route: 048
     Dates: start: 20110901, end: 20111201
  2. RIBAVIRIN [Concomitant]
     Indication: HEPATITIS C
     Dates: start: 20110901
  3. PEGASYS [Concomitant]
     Indication: HEPATITIS C
     Dates: start: 20110901

REACTIONS (3)
  - FATIGUE [None]
  - WEIGHT DECREASED [None]
  - ANAEMIA [None]
